FAERS Safety Report 15732010 (Version 1)
Quarter: 2018Q4

REPORT INFORMATION
  Report Type: Spontaneous
  Country: HK (occurrence: HK)
  Receive Date: 20181217
  Receipt Date: 20181217
  Transmission Date: 20190205
  Serious: Yes (Life-Threatening, Hospitalization)
  Sender: FDA-Public Use
  Company Number: HK-MYLANLABS-2018M1091590

PATIENT
  Age: 5 Year
  Sex: Female

DRUGS (2)
  1. CARBAMAZEPINE. [Suspect]
     Active Substance: CARBAMAZEPINE
     Indication: PARTIAL SEIZURES
     Route: 065
  2. PREDNISOLONE. [Suspect]
     Active Substance: PREDNISOLONE
     Indication: DRUG REACTION WITH EOSINOPHILIA AND SYSTEMIC SYMPTOMS
     Route: 065

REACTIONS (8)
  - Haemorrhage [Unknown]
  - Pancreatitis acute [Unknown]
  - Renal impairment [Unknown]
  - Duodenal ulcer [Unknown]
  - Drug reaction with eosinophilia and systemic symptoms [Recovering/Resolving]
  - Vanishing bile duct syndrome [Unknown]
  - Hepatic function abnormal [Unknown]
  - Pneumonitis [Unknown]

NARRATIVE: CASE EVENT DATE: 201402
